FAERS Safety Report 24082262 (Version 2)
Quarter: 2024Q3

REPORT INFORMATION
  Report Type: Spontaneous
  Country: US (occurrence: US)
  Receive Date: 20240712
  Receipt Date: 20240801
  Transmission Date: 20241017
  Serious: No
  Sender: FDC LIMITED
  Company Number: US-FDC-2024USSPO00486

PATIENT
  Age: 52 Year
  Sex: Female

DRUGS (3)
  1. CIPROFLOXACIN [Suspect]
     Active Substance: CIPROFLOXACIN
     Indication: Conjunctivitis
     Route: 047
     Dates: start: 202406, end: 202406
  2. CIPROFLOXACIN [Suspect]
     Active Substance: CIPROFLOXACIN
     Route: 047
     Dates: start: 20240621
  3. CIPROFLOXACIN [Suspect]
     Active Substance: CIPROFLOXACIN

REACTIONS (2)
  - Vision blurred [Unknown]
  - Expired product administered [Unknown]

NARRATIVE: CASE EVENT DATE: 20240601
